FAERS Safety Report 10162931 (Version 2)
Quarter: 2014Q2

REPORT INFORMATION
  Report Type: Spontaneous
  Country: US (occurrence: US)
  Receive Date: 20140509
  Receipt Date: 20140616
  Transmission Date: 20141212
  Serious: No
  Sender: FDA-Public Use
  Company Number: US-PFIZER INC-2014125758

PATIENT
  Age: 64 Year
  Sex: Female
  Weight: 77.1 kg

DRUGS (13)
  1. LYRICA [Suspect]
     Indication: FIBROMYALGIA
     Dosage: 150 MG, 3X/DAY
     Dates: end: 20140430
  2. DIAZEPAM [Concomitant]
     Dosage: 5 MG, TWICE A DAY AS NEEDED
  3. CALCIUM [Concomitant]
     Indication: MINERAL SUPPLEMENTATION
     Dosage: 1000 MG, 1X/DAY
  4. VITAMIN B12 [Concomitant]
     Indication: VITAMIN SUPPLEMENTATION
     Dosage: 2500 MG, 1X/DAY
  5. CLONIDINE [Concomitant]
     Indication: HYPERTENSION
     Dosage: 0.1 MG, 2X/DAY
  6. TOPROL XL [Concomitant]
     Indication: HYPERTENSION
     Dosage: 50 MG, 1X/DAY
  7. LISINOPRIL [Concomitant]
     Indication: HYPERTENSION
     Dosage: 20 MG, 1X/DAY
  8. CRESTOR [Concomitant]
     Indication: BLOOD CHOLESTEROL INCREASED
     Dosage: 10 MG, UNK
  9. ASPIRIN [Concomitant]
     Indication: MYOCARDIAL INFARCTION
     Dosage: 81 MG, 1X/DAY
  10. PRILOSEC [Concomitant]
     Indication: HIATUS HERNIA
     Dosage: 20 MG, 1X/DAY
  11. PLAQUENIL [Concomitant]
     Indication: RHEUMATOID ARTHRITIS
     Dosage: 200 MG, 2X/DAY
  12. METHOTREXATE [Concomitant]
     Indication: RHEUMATOID ARTHRITIS
     Dosage: 15 MG, WEEKLY
  13. FOLIC ACID [Concomitant]
     Indication: RHEUMATOID ARTHRITIS
     Dosage: 1 MG, 1X/DAY

REACTIONS (5)
  - Drug withdrawal syndrome [Recovered/Resolved]
  - Burning sensation [Recovered/Resolved]
  - Paraesthesia [Recovered/Resolved]
  - Pain [Recovered/Resolved]
  - Discomfort [Recovered/Resolved]
